FAERS Safety Report 6028423-8 (Version None)
Quarter: 2009Q1

REPORT INFORMATION
  Report Type: 
  Country: None (occurrence: None)
  Receive Date: 20090106
  Receipt Date: 20090102
  Transmission Date: 20090719
  Serious: Yes (Life-Threatening, Hospitalization)
  Sender: FDA-Public Use
  Company Number: LB-AVENTIS-200910010EU

PATIENT
  Age: 62 Year
  Sex: Female
  Weight: 100 kg

DRUGS (6)
  1. LOVENOX [Suspect]
     Indication: ACUTE CORONARY SYNDROME
     Route: 058
     Dates: start: 20081221, end: 20081223
  2. AMLOR [Concomitant]
     Indication: HYPERTENSION
  3. PLAVIX [Concomitant]
     Indication: ACUTE CORONARY SYNDROME
     Route: 048
     Dates: start: 20081221, end: 20081221
  4. PLAVIX [Concomitant]
     Route: 048
     Dates: start: 20081222, end: 20081223
  5. ASPIRIN [Concomitant]
     Indication: ACUTE CORONARY SYNDROME
     Route: 048
     Dates: start: 20081221, end: 20081223
  6. HEPARIN [Concomitant]
     Dates: start: 20081223

REACTIONS (2)
  - INTRA-ABDOMINAL HAEMORRHAGE [None]
  - ISCHAEMIC STROKE [None]
